FAERS Safety Report 8215836-9 (Version None)
Quarter: 2012Q1

REPORT INFORMATION
  Report Type: 
  Country: None (occurrence: None)
  Receive Date: 20120316
  Receipt Date: 20120302
  Transmission Date: 20120608
  Serious: Yes (Hospitalization, Other)
  Sender: FDA-Public Use
  Company Number: US-ROCHE-GNE314391

PATIENT
  Sex: Female

DRUGS (1)
  1. OMALIZUMAB [Suspect]
     Indication: ASTHMA
     Dosage: 375 MG, Q2W
     Route: 064
     Dates: start: 20100420

REACTIONS (3)
  - GASTRITIS VIRAL [None]
  - MATERNAL EXPOSURE TIMING UNSPECIFIED [None]
  - JAUNDICE [None]
